FAERS Safety Report 6208912-3 (Version None)
Quarter: 2009Q2

REPORT INFORMATION
  Report Type: 
  Country: None (occurrence: None)
  Receive Date: 20090529
  Receipt Date: 20090525
  Transmission Date: 20091009
  Serious: Yes (Other)
  Sender: FDA-Public Use
  Company Number: D0061563A

PATIENT
  Sex: Female

DRUGS (2)
  1. IMIGRAN SC [Suspect]
     Route: 065
  2. 5-HT1D AGONIST UNSPECIFIED [Concomitant]
     Route: 065
     Dates: start: 19990101

REACTIONS (5)
  - ACCOMMODATION DISORDER [None]
  - BLINDNESS [None]
  - VISION BLURRED [None]
  - VISUAL ACUITY REDUCED [None]
  - VISUAL IMPAIRMENT [None]
